FAERS Safety Report 8921928 (Version 1)
Quarter: 2012Q4

REPORT INFORMATION
  Report Type: Spontaneous
  Country: US (occurrence: None)
  Receive Date: 20121119
  Receipt Date: 20121119
  Transmission Date: 20130627
  Serious: Yes (Life-Threatening, Hospitalization)
  Sender: FDA-Public Use
  Company Number: None

PATIENT
  Age: 15 Year
  Sex: Female
  Weight: 88.9 kg

DRUGS (3)
  1. VICTOZA [Suspect]
     Indication: DIABETES
     Route: 058
     Dates: start: 20121031, end: 20121103
  2. HUMALOG [Concomitant]
  3. KLONOPIN [Concomitant]

REACTIONS (2)
  - Anaphylactic reaction [None]
  - Diarrhoea [None]
